FAERS Safety Report 18216862 (Version 2)
Quarter: 2021Q3

REPORT INFORMATION
  Report Type: Spontaneous
  Country: CA (occurrence: CA)
  Receive Date: 20200901
  Receipt Date: 20210804
  Transmission Date: 20211014
  Serious: Yes (Hospitalization, Other)
  Sender: FDA-Public Use
  Company Number: CA-ACCORD-198289

PATIENT
  Age: 61 Year
  Sex: Female

DRUGS (19)
  1. SULFA [Concomitant]
     Active Substance: UNSPECIFIED INGREDIENT
  2. CALCIUM CARBONATE. [Concomitant]
     Active Substance: CALCIUM CARBONATE
  3. PARACETAMOL [Concomitant]
     Active Substance: ACETAMINOPHEN
  4. CISPLATIN. [Suspect]
     Active Substance: CISPLATIN
     Indication: PRODUCT USED FOR UNKNOWN INDICATION
     Dosage: STRENGTH: 10MG/10ML, 50MG/50ML,?100MG/100ML
  5. PERINDOPRIL [Concomitant]
     Active Substance: PERINDOPRIL
  6. EZETIMIBE. [Concomitant]
     Active Substance: EZETIMIBE
  7. GLYXAMBI [Concomitant]
     Active Substance: EMPAGLIFLOZIN\LINAGLIPTIN
  8. TYLENOL [Concomitant]
     Active Substance: ACETAMINOPHEN
  9. SENNOSIDE A+B [Concomitant]
     Active Substance: SENNOSIDES A AND B
  10. ETOPOSIDE. [Suspect]
     Active Substance: ETOPOSIDE
     Indication: PRODUCT USED FOR UNKNOWN INDICATION
  11. MELATONIN [Concomitant]
     Active Substance: MELATONIN
  12. HYDROMORPHONE/HYDROMORPHONE HYDROCHLORIDE [Concomitant]
     Active Substance: HYDROMORPHONE
  13. PANTOPRAZOLE [Concomitant]
     Active Substance: PANTOPRAZOLE
  14. EMPAGLIFLOZIN [Concomitant]
     Active Substance: EMPAGLIFLOZIN
  15. PREDNISONE. [Concomitant]
     Active Substance: PREDNISONE
  16. TRIMETHOPRIM. [Concomitant]
     Active Substance: TRIMETHOPRIM
  17. ROSUVASTATIN/ROSUVASTATIN CALCIUM [Concomitant]
     Active Substance: ROSUVASTATIN CALCIUM
  18. METFORMIN [Concomitant]
     Active Substance: METFORMIN HYDROCHLORIDE
  19. COLECALCIFEROL [Concomitant]
     Active Substance: CHOLECALCIFEROL

REACTIONS (4)
  - Vomiting [Recovering/Resolving]
  - Dehydration [Recovering/Resolving]
  - Abdominal pain [Recovering/Resolving]
  - Nausea [Recovering/Resolving]
